FAERS Safety Report 24599713 (Version 3)
Quarter: 2025Q1

REPORT INFORMATION
  Report Type: Spontaneous
  Country: US (occurrence: US)
  Receive Date: 20241110
  Receipt Date: 20250312
  Transmission Date: 20250408
  Serious: Yes (Other)
  Sender: SANOFI AVENTIS
  Company Number: US-SA-2024SA314287

PATIENT
  Age: 63 Year
  Sex: Male

DRUGS (1)
  1. DUPIXENT [Suspect]
     Active Substance: DUPILUMAB
     Indication: Chronic rhinosinusitis with nasal polyps
     Dosage: 300 MG, QOW
     Route: 058
     Dates: start: 20240628

REACTIONS (9)
  - Neuropathy peripheral [Unknown]
  - Staphylococcal infection [Unknown]
  - Weight increased [Unknown]
  - Eyelid infection [Unknown]
  - Eye pain [Unknown]
  - Eyelid disorder [Unknown]
  - Sinusitis [Unknown]
  - Rhinorrhoea [Unknown]
  - Arthralgia [Unknown]

NARRATIVE: CASE EVENT DATE: 20240628
